FAERS Safety Report 7908451-5 (Version None)
Quarter: 2011Q4

REPORT INFORMATION
  Report Type: 
  Country: None (occurrence: None)
  Receive Date: 20111111
  Receipt Date: 20111031
  Transmission Date: 20120403
  Serious: Yes (Hospitalization)
  Sender: FDA-Public Use
  Company Number: US-BAYER-201036131NA

PATIENT
  Age: 20 Year
  Sex: Female

DRUGS (11)
  1. CALCIUM CARBONATE [Concomitant]
     Route: 048
  2. PREVACID [Concomitant]
     Dosage: UNK UNK, TID
  3. DROSPIRENONE AND ETHINYL ESTRADIOL [Suspect]
     Indication: MENSTRUAL DISORDER
     Dosage: UNK
     Route: 048
     Dates: start: 20080801, end: 20090101
  4. MIDRIN [Concomitant]
     Route: 048
  5. NEXIUM [Concomitant]
  6. IBUPROFEN [Concomitant]
  7. UNCODEABLE ^UNCLASSIFIABLE^ [Concomitant]
     Route: 048
  8. DROSPIRENONE AND ETHINYL ESTRADIOL [Suspect]
     Indication: ACNE
     Dosage: UNK
     Dates: start: 20090301, end: 20091201
  9. YASMIN [Suspect]
     Indication: ACNE
     Dosage: UNK
     Dates: start: 20050801, end: 20051001
  10. VICODIN [Concomitant]
  11. MYLANTA PLUS [Concomitant]
     Route: 048

REACTIONS (10)
  - DYSPEPSIA [None]
  - CHOLECYSTITIS ACUTE [None]
  - CONSTIPATION [None]
  - DIARRHOEA [None]
  - SCAR [None]
  - ABDOMINAL DISTENSION [None]
  - DEPRESSION [None]
  - CHOLECYSTECTOMY [None]
  - ANXIETY [None]
  - FLATULENCE [None]
